FAERS Safety Report 12492057 (Version 1)
Quarter: 2016Q2

REPORT INFORMATION
  Report Type: Spontaneous
  Country: US (occurrence: None)
  Receive Date: 20160622
  Receipt Date: 20160622
  Transmission Date: 20160815
  Serious: Yes (Hospitalization)
  Sender: FDA-Public Use
  Company Number: None

PATIENT
  Age: 74 Year
  Sex: Female

DRUGS (13)
  1. HYDROCIDE [Concomitant]
  2. B6 [Concomitant]
     Active Substance: PYRIDOXINE HYDROCHLORIDE
  3. COMBIVENT [Concomitant]
     Active Substance: ALBUTEROL SULFATE\IPRATROPIUM BROMIDE
  4. VITAMIN D3 [Concomitant]
     Active Substance: CHOLECALCIFEROL
  5. VITAMIN A AND D [Concomitant]
     Active Substance: LANOLIN\PETROLATUM
  6. GAS-X [Concomitant]
     Active Substance: DIMETHICONE
  7. ESCITALOPRAM 10MG TABLET ACCORD [Suspect]
     Active Substance: ESCITALOPRAM OXALATE
     Indication: ANXIETY
     Route: 048
     Dates: start: 20160424, end: 20160601
  8. MAGNESIUM [Concomitant]
     Active Substance: MAGNESIUM
  9. C [Concomitant]
  10. QVAR [Concomitant]
     Active Substance: BECLOMETHASONE DIPROPIONATE
  11. MILK THISTLE [Concomitant]
     Active Substance: MILK THISTLE
  12. PREVID [Concomitant]
  13. BLINK GEL EYE DROPS [Concomitant]

REACTIONS (9)
  - Vasodilatation [None]
  - Influenza [None]
  - Pain in jaw [None]
  - Middle insomnia [None]
  - Weight decreased [None]
  - Musculoskeletal pain [None]
  - Pain in extremity [None]
  - Toothache [None]
  - Neck pain [None]

NARRATIVE: CASE EVENT DATE: 20160429
